FAERS Safety Report 24136039 (Version 1)
Quarter: 2024Q3

REPORT INFORMATION
  Report Type: Spontaneous
  Country: CN (occurrence: CN)
  Receive Date: 20240725
  Receipt Date: 20240725
  Transmission Date: 20241016
  Serious: Yes (Hospitalization, Other)
  Sender: PFIZER
  Company Number: CN-PFIZER INC-PV202400094915

PATIENT
  Age: 25 Year
  Sex: Female
  Weight: 49 kg

DRUGS (2)
  1. METHOTREXATE SODIUM [Suspect]
     Active Substance: METHOTREXATE SODIUM
     Indication: Ectopic pregnancy
     Dosage: 70.75 MG, 1X/DAY
     Route: 030
     Dates: start: 20240710, end: 20240710
  2. STERILE WATER [Concomitant]
     Active Substance: WATER
     Indication: Vehicle solution use
     Dosage: 2 ML, 1X/DAY
     Route: 030
     Dates: start: 20240710, end: 20240710

REACTIONS (6)
  - Mouth ulceration [Not Recovered/Not Resolved]
  - Temperature intolerance [Not Recovered/Not Resolved]
  - Dizziness [Not Recovered/Not Resolved]
  - Headache [Not Recovered/Not Resolved]
  - Pyrexia [Not Recovered/Not Resolved]
  - Off label use [Unknown]

NARRATIVE: CASE EVENT DATE: 20240714
